FAERS Safety Report 7068648-6 (Version None)
Quarter: 2010Q4

REPORT INFORMATION
  Report Type: 
  Country: None (occurrence: None)
  Receive Date: 20101027
  Receipt Date: 20101027
  Transmission Date: 20110411
  Serious: Yes (Other)
  Sender: FDA-Public Use
  Company Number: None

PATIENT
  Sex: Male
  Weight: 10.8863 kg

DRUGS (1)
  1. HYLAND'S TEETHING TABLETS N/A STANDARD HOMEOPATHIC COMPANY [Suspect]
     Indication: TEETHING
     Dosage: 2-3 TABLETS 3-10 TIMES PER WK. PO
     Route: 048
     Dates: start: 20100101, end: 20100925

REACTIONS (3)
  - DYSPNOEA [None]
  - POOR QUALITY DRUG ADMINISTERED [None]
  - PRODUCT QUALITY ISSUE [None]
